FAERS Safety Report 25391723 (Version 1)
Quarter: 2025Q2

REPORT INFORMATION
  Report Type: Spontaneous
  Country: CN (occurrence: CN)
  Receive Date: 20250603
  Receipt Date: 20250603
  Transmission Date: 20250717
  Serious: Yes (Other)
  Sender: NOVARTIS
  Company Number: CN-002147023-NVSC2025CN088935

PATIENT
  Age: 76 Year
  Sex: Female

DRUGS (4)
  1. TOBREX [Suspect]
     Active Substance: TOBRAMYCIN
     Indication: Dry eye
     Dosage: 1.000 DRP, TID
     Route: 047
     Dates: start: 20250510, end: 20250511
  2. TOBREX [Suspect]
     Active Substance: TOBRAMYCIN
     Indication: Eye pain
  3. PRANOPROFEN [Suspect]
     Active Substance: PRANOPROFEN
     Indication: Dry eye
     Dosage: 1.000 DRP, TID
     Route: 047
     Dates: start: 20250510, end: 20250511
  4. PRANOPROFEN [Suspect]
     Active Substance: PRANOPROFEN
     Indication: Eye pain

REACTIONS (7)
  - Corneal epithelium defect [Unknown]
  - Conjunctival hyperaemia [Recovering/Resolving]
  - Swelling of eyelid [Recovering/Resolving]
  - Erythema of eyelid [Recovering/Resolving]
  - Eczema eyelids [Unknown]
  - Conjunctivitis [Unknown]
  - Ocular discomfort [Recovering/Resolving]

NARRATIVE: CASE EVENT DATE: 20250510
